FAERS Safety Report 24855776 (Version 1)
Quarter: 2025Q1

REPORT INFORMATION
  Report Type: Spontaneous
  Country: US (occurrence: None)
  Receive Date: 20250116
  Receipt Date: 20250116
  Transmission Date: 20250409
  Serious: Yes (Hospitalization)
  Sender: FDA-CTU
  Company Number: None

PATIENT
  Sex: Female

DRUGS (2)
  1. MYCOPHENOLATE MOFETIL [Suspect]
     Active Substance: MYCOPHENOLATE MOFETIL
     Indication: Pulmonary arterial hypertension
     Dosage: 1500MG BID PO
     Route: 048
     Dates: start: 202202
  2. TYVASO DPI [Suspect]
     Active Substance: TREPROSTINIL

REACTIONS (4)
  - Fall [None]
  - Head injury [None]
  - Contusion [None]
  - Contusion [None]
